FAERS Safety Report 12216165 (Version 11)
Quarter: 2020Q2

REPORT INFORMATION
  Report Type: Spontaneous
  Country: CA (occurrence: CA)
  Receive Date: 20160329
  Receipt Date: 20200512
  Transmission Date: 20200713
  Serious: Yes (Hospitalization, Other)
  Sender: FDA-Public Use
  Company Number: CA-ROCHE-1732689

PATIENT
  Age: 76 Year
  Sex: Female

DRUGS (7)
  1. XOLAIR [Suspect]
     Active Substance: OMALIZUMAB
     Route: 058
     Dates: start: 20170725
  2. XOLAIR [Suspect]
     Active Substance: OMALIZUMAB
     Indication: ASTHMA
     Route: 058
     Dates: start: 20150420
  3. XOLAIR [Suspect]
     Active Substance: OMALIZUMAB
     Route: 058
     Dates: start: 20170627
  4. XOLAIR [Suspect]
     Active Substance: OMALIZUMAB
     Route: 058
     Dates: start: 20170307
  5. XOLAIR [Suspect]
     Active Substance: OMALIZUMAB
     Route: 058
     Dates: start: 20170404
  6. XOLAIR [Suspect]
     Active Substance: OMALIZUMAB
     Route: 058
     Dates: start: 20190829
  7. XOLAIR [Suspect]
     Active Substance: OMALIZUMAB
     Route: 058
     Dates: start: 20170822

REACTIONS (25)
  - Pulmonary thrombosis [Unknown]
  - Tachycardia [Unknown]
  - Drug ineffective [Unknown]
  - Weight decreased [Unknown]
  - Cough [Unknown]
  - Skin ulcer [Unknown]
  - Nasopharyngitis [Unknown]
  - Cardiac disorder [Unknown]
  - Wrist fracture [Unknown]
  - Dust allergy [Unknown]
  - Pulmonary oedema [Unknown]
  - Influenza [Unknown]
  - Blister rupture [Unknown]
  - Gastrointestinal disorder [Unknown]
  - Heart rate irregular [Unknown]
  - Fall [Unknown]
  - Vertigo [Recovered/Resolved]
  - Productive cough [Unknown]
  - Palpitations [Unknown]
  - Cellulitis [Unknown]
  - Chest pain [Unknown]
  - Bronchitis [Unknown]
  - Pneumonia [Recovering/Resolving]
  - Sputum discoloured [Unknown]
  - Dyspnoea [Not Recovered/Not Resolved]

NARRATIVE: CASE EVENT DATE: 201511
